FAERS Safety Report 25157392 (Version 1)
Quarter: 2025Q2

REPORT INFORMATION
  Report Type: Spontaneous
  Country: CH (occurrence: CH)
  Receive Date: 20250403
  Receipt Date: 20250403
  Transmission Date: 20250717
  Serious: Yes (Life-Threatening, Hospitalization)
  Sender: MYLAN
  Company Number: None

PATIENT
  Age: 77 Year
  Sex: Female

DRUGS (72)
  1. NEURONTIN [Suspect]
     Active Substance: GABAPENTIN
     Indication: Trigeminal neuralgia
     Dosage: 100 MILLIGRAM, TID (100 MG 1 IN THE MORNING, AT MIDDAY AND IN THE EVENING)
     Dates: start: 202410, end: 20250226
  2. NEURONTIN [Suspect]
     Active Substance: GABAPENTIN
     Dosage: 100 MILLIGRAM, TID (100 MG 1 IN THE MORNING, AT MIDDAY AND IN THE EVENING)
     Route: 048
     Dates: start: 202410, end: 20250226
  3. NEURONTIN [Suspect]
     Active Substance: GABAPENTIN
     Dosage: 100 MILLIGRAM, TID (100 MG 1 IN THE MORNING, AT MIDDAY AND IN THE EVENING)
     Route: 048
     Dates: start: 202410, end: 20250226
  4. NEURONTIN [Suspect]
     Active Substance: GABAPENTIN
     Dosage: 100 MILLIGRAM, TID (100 MG 1 IN THE MORNING, AT MIDDAY AND IN THE EVENING)
     Dates: start: 202410, end: 20250226
  5. MEROPENEM [Suspect]
     Active Substance: MEROPENEM
     Indication: Encephalitis
     Dosage: 2 GRAM, TID (1 G: 2 G 3 X DAILY)
     Dates: start: 20250213, end: 20250224
  6. MEROPENEM [Suspect]
     Active Substance: MEROPENEM
     Dosage: 2 GRAM, TID (1 G: 2 G 3 X DAILY)
     Route: 042
     Dates: start: 20250213, end: 20250224
  7. MEROPENEM [Suspect]
     Active Substance: MEROPENEM
     Dosage: 2 GRAM, TID (1 G: 2 G 3 X DAILY)
     Route: 042
     Dates: start: 20250213, end: 20250224
  8. MEROPENEM [Suspect]
     Active Substance: MEROPENEM
     Dosage: 2 GRAM, TID (1 G: 2 G 3 X DAILY)
     Dates: start: 20250213, end: 20250224
  9. OXCARBAZEPINE [Suspect]
     Active Substance: OXCARBAZEPINE
     Indication: Trigeminal neuralgia
     Dosage: 150 MILLIGRAM, TID (150 MG 3 X DAILY)
     Dates: start: 202407, end: 202502
  10. OXCARBAZEPINE [Suspect]
     Active Substance: OXCARBAZEPINE
     Dosage: 150 MILLIGRAM, TID (150 MG 3 X DAILY)
     Dates: start: 202407, end: 202502
  11. OXCARBAZEPINE [Suspect]
     Active Substance: OXCARBAZEPINE
     Dosage: 150 MILLIGRAM, TID (150 MG 3 X DAILY)
     Route: 048
     Dates: start: 202407, end: 202502
  12. OXCARBAZEPINE [Suspect]
     Active Substance: OXCARBAZEPINE
     Dosage: 150 MILLIGRAM, TID (150 MG 3 X DAILY)
     Route: 048
     Dates: start: 202407, end: 202502
  13. OXCARBAZEPINE [Suspect]
     Active Substance: OXCARBAZEPINE
     Dosage: 100 MILLIGRAM, TID (100 MG 3 X DAILY)
     Dates: start: 202502, end: 20250224
  14. OXCARBAZEPINE [Suspect]
     Active Substance: OXCARBAZEPINE
     Dosage: 100 MILLIGRAM, TID (100 MG 3 X DAILY)
     Dates: start: 202502, end: 20250224
  15. OXCARBAZEPINE [Suspect]
     Active Substance: OXCARBAZEPINE
     Dosage: 100 MILLIGRAM, TID (100 MG 3 X DAILY)
     Route: 048
     Dates: start: 202502, end: 20250224
  16. OXCARBAZEPINE [Suspect]
     Active Substance: OXCARBAZEPINE
     Dosage: 100 MILLIGRAM, TID (100 MG 3 X DAILY)
     Route: 048
     Dates: start: 202502, end: 20250224
  17. OXCARBAZEPINE [Suspect]
     Active Substance: OXCARBAZEPINE
     Dosage: 75 MILLIGRAM, BID (75 MG 2 X DAILY)
     Dates: start: 20250225, end: 20250307
  18. OXCARBAZEPINE [Suspect]
     Active Substance: OXCARBAZEPINE
     Dosage: 75 MILLIGRAM, BID (75 MG 2 X DAILY)
     Route: 048
     Dates: start: 20250225, end: 20250307
  19. OXCARBAZEPINE [Suspect]
     Active Substance: OXCARBAZEPINE
     Dosage: 75 MILLIGRAM, BID (75 MG 2 X DAILY)
     Dates: start: 20250225, end: 20250307
  20. OXCARBAZEPINE [Suspect]
     Active Substance: OXCARBAZEPINE
     Dosage: 75 MILLIGRAM, BID (75 MG 2 X DAILY)
     Route: 048
     Dates: start: 20250225, end: 20250307
  21. VIMPAT [Suspect]
     Active Substance: LACOSAMIDE
     Indication: Epilepsy
     Dosage: 100 MILLIGRAM, BID (100 MG 1 IN THE MORNING AND EVENING)
     Dates: start: 20250217, end: 20250225
  22. VIMPAT [Suspect]
     Active Substance: LACOSAMIDE
     Dosage: 100 MILLIGRAM, BID (100 MG 1 IN THE MORNING AND EVENING)
     Dates: start: 20250217, end: 20250225
  23. VIMPAT [Suspect]
     Active Substance: LACOSAMIDE
     Dosage: 100 MILLIGRAM, BID (100 MG 1 IN THE MORNING AND EVENING)
     Route: 048
     Dates: start: 20250217, end: 20250225
  24. VIMPAT [Suspect]
     Active Substance: LACOSAMIDE
     Dosage: 100 MILLIGRAM, BID (100 MG 1 IN THE MORNING AND EVENING)
     Route: 048
     Dates: start: 20250217, end: 20250225
  25. VIMPAT [Suspect]
     Active Substance: LACOSAMIDE
     Dosage: 50 MILLIGRAM, BID (50 MG 2 X DAILY)
     Dates: start: 20250226
  26. VIMPAT [Suspect]
     Active Substance: LACOSAMIDE
     Dosage: 50 MILLIGRAM, BID (50 MG 2 X DAILY)
     Dates: start: 20250226
  27. VIMPAT [Suspect]
     Active Substance: LACOSAMIDE
     Dosage: 50 MILLIGRAM, BID (50 MG 2 X DAILY)
     Route: 048
     Dates: start: 20250226
  28. VIMPAT [Suspect]
     Active Substance: LACOSAMIDE
     Dosage: 50 MILLIGRAM, BID (50 MG 2 X DAILY)
     Route: 048
     Dates: start: 20250226
  29. IOPAMIRO [Suspect]
     Active Substance: IOPAMIDOL
     Indication: Diagnostic procedure
     Dates: start: 20250122, end: 20250122
  30. IOPAMIRO [Suspect]
     Active Substance: IOPAMIDOL
     Route: 042
     Dates: start: 20250122, end: 20250122
  31. IOPAMIRO [Suspect]
     Active Substance: IOPAMIDOL
     Route: 042
     Dates: start: 20250122, end: 20250122
  32. IOPAMIRO [Suspect]
     Active Substance: IOPAMIDOL
     Dates: start: 20250122, end: 20250122
  33. ULTRAVIST [Suspect]
     Active Substance: IOPROMIDE
     Indication: Diagnostic procedure
     Dates: start: 20250206, end: 20250206
  34. ULTRAVIST [Suspect]
     Active Substance: IOPROMIDE
     Route: 042
     Dates: start: 20250206, end: 20250206
  35. ULTRAVIST [Suspect]
     Active Substance: IOPROMIDE
     Route: 042
     Dates: start: 20250206, end: 20250206
  36. ULTRAVIST [Suspect]
     Active Substance: IOPROMIDE
     Dates: start: 20250206, end: 20250206
  37. GADOLINIUM [Suspect]
     Active Substance: GADOLINIUM
     Indication: Diagnostic procedure
     Dates: start: 20250210, end: 20250210
  38. GADOLINIUM [Suspect]
     Active Substance: GADOLINIUM
     Dates: start: 20250210, end: 20250210
  39. GADOLINIUM [Suspect]
     Active Substance: GADOLINIUM
     Route: 042
     Dates: start: 20250210, end: 20250210
  40. GADOLINIUM [Suspect]
     Active Substance: GADOLINIUM
     Route: 042
     Dates: start: 20250210, end: 20250210
  41. GADOLINIUM [Suspect]
     Active Substance: GADOLINIUM
     Dates: start: 20250217, end: 20250217
  42. GADOLINIUM [Suspect]
     Active Substance: GADOLINIUM
     Dates: start: 20250217, end: 20250217
  43. GADOLINIUM [Suspect]
     Active Substance: GADOLINIUM
     Route: 042
     Dates: start: 20250217, end: 20250217
  44. GADOLINIUM [Suspect]
     Active Substance: GADOLINIUM
     Route: 042
     Dates: start: 20250217, end: 20250217
  45. DAFALGAN [Concomitant]
     Active Substance: ACETAMINOPHEN
     Indication: Pain
  46. DAFALGAN [Concomitant]
     Active Substance: ACETAMINOPHEN
     Route: 048
  47. DAFALGAN [Concomitant]
     Active Substance: ACETAMINOPHEN
     Route: 048
  48. DAFALGAN [Concomitant]
     Active Substance: ACETAMINOPHEN
  49. QUETIAPINE [Concomitant]
     Active Substance: QUETIAPINE
     Indication: Restlessness
  50. QUETIAPINE [Concomitant]
     Active Substance: QUETIAPINE
     Route: 048
  51. QUETIAPINE [Concomitant]
     Active Substance: QUETIAPINE
     Route: 048
  52. QUETIAPINE [Concomitant]
     Active Substance: QUETIAPINE
  53. Redormin [Concomitant]
     Indication: Insomnia
  54. Redormin [Concomitant]
     Route: 048
  55. Redormin [Concomitant]
     Route: 048
  56. Redormin [Concomitant]
  57. ELIQUIS [Concomitant]
     Active Substance: APIXABAN
     Indication: Atrial fibrillation
     Dosage: 5 MILLIGRAM, BID (5 MG 1 IN THE MORNING AND EVENING)
     Dates: start: 202404
  58. ELIQUIS [Concomitant]
     Active Substance: APIXABAN
     Dosage: 5 MILLIGRAM, BID (5 MG 1 IN THE MORNING AND EVENING)
     Route: 048
     Dates: start: 202404
  59. ELIQUIS [Concomitant]
     Active Substance: APIXABAN
     Dosage: 5 MILLIGRAM, BID (5 MG 1 IN THE MORNING AND EVENING)
     Route: 048
     Dates: start: 202404
  60. ELIQUIS [Concomitant]
     Active Substance: APIXABAN
     Dosage: 5 MILLIGRAM, BID (5 MG 1 IN THE MORNING AND EVENING)
     Dates: start: 202404
  61. METOPROLOL SUCCINATE [Concomitant]
     Active Substance: METOPROLOL SUCCINATE
     Indication: Hypertension
     Dosage: 50 MILLIGRAM, AM (50 MG 1 IN THE MORNING)
  62. METOPROLOL SUCCINATE [Concomitant]
     Active Substance: METOPROLOL SUCCINATE
     Dosage: 50 MILLIGRAM, AM (50 MG 1 IN THE MORNING)
     Route: 048
  63. METOPROLOL SUCCINATE [Concomitant]
     Active Substance: METOPROLOL SUCCINATE
     Dosage: 50 MILLIGRAM, AM (50 MG 1 IN THE MORNING)
     Route: 048
  64. METOPROLOL SUCCINATE [Concomitant]
     Active Substance: METOPROLOL SUCCINATE
     Dosage: 50 MILLIGRAM, AM (50 MG 1 IN THE MORNING)
  65. HYDROCHLOROTHIAZIDE\IRBESARTAN [Concomitant]
     Active Substance: HYDROCHLOROTHIAZIDE\IRBESARTAN
     Indication: Hypertension
     Dosage: 1 DOSAGE FORM, AM (150/12.5 MG 1 IN THE MORNING)
  66. HYDROCHLOROTHIAZIDE\IRBESARTAN [Concomitant]
     Active Substance: HYDROCHLOROTHIAZIDE\IRBESARTAN
     Dosage: 1 DOSAGE FORM, AM (150/12.5 MG 1 IN THE MORNING)
     Route: 048
  67. HYDROCHLOROTHIAZIDE\IRBESARTAN [Concomitant]
     Active Substance: HYDROCHLOROTHIAZIDE\IRBESARTAN
     Dosage: 1 DOSAGE FORM, AM (150/12.5 MG 1 IN THE MORNING)
     Route: 048
  68. HYDROCHLOROTHIAZIDE\IRBESARTAN [Concomitant]
     Active Substance: HYDROCHLOROTHIAZIDE\IRBESARTAN
     Dosage: 1 DOSAGE FORM, AM (150/12.5 MG 1 IN THE MORNING)
  69. AMLODIPINE [Concomitant]
     Active Substance: AMLODIPINE BESYLATE
     Indication: Hypertension
     Dosage: 5 MILLIGRAM, AM (1 IN THE MORNING)
  70. AMLODIPINE [Concomitant]
     Active Substance: AMLODIPINE BESYLATE
     Dosage: 5 MILLIGRAM, AM (1 IN THE MORNING)
     Route: 048
  71. AMLODIPINE [Concomitant]
     Active Substance: AMLODIPINE BESYLATE
     Dosage: 5 MILLIGRAM, AM (1 IN THE MORNING)
     Route: 048
  72. AMLODIPINE [Concomitant]
     Active Substance: AMLODIPINE BESYLATE
     Dosage: 5 MILLIGRAM, AM (1 IN THE MORNING)

REACTIONS (5)
  - Toxic encephalopathy [Recovering/Resolving]
  - Acute kidney injury [Recovering/Resolving]
  - Drug reaction with eosinophilia and systemic symptoms [Recovering/Resolving]
  - Myoclonus [Recovered/Resolved]
  - Thrombocytopenia [Recovering/Resolving]

NARRATIVE: CASE EVENT DATE: 20250201
